FAERS Safety Report 15434666 (Version 4)
Quarter: 2020Q3

REPORT INFORMATION
  Report Type: Report from Study
  Country: DE (occurrence: DE)
  Receive Date: 20180927
  Receipt Date: 20181019
  Transmission Date: 20201104
  Serious: Yes (Hospitalization, Other)
  Sender: FDA-Public Use
  Company Number: DE-JNJFOC-20180813074

PATIENT
  Age: 6 Decade
  Sex: Male
  Weight: 83 kg

DRUGS (3)
  1. TRABECTEDIN [Suspect]
     Active Substance: TRABECTEDIN
     Route: 042
  2. TRABECTEDIN [Suspect]
     Active Substance: TRABECTEDIN
     Indication: SARCOMA METASTATIC
     Route: 042
     Dates: start: 20180831
  3. TRABECTEDIN [Suspect]
     Active Substance: TRABECTEDIN
     Indication: SARCOMA METASTATIC
     Dosage: CYCLE 1 DAY 1
     Route: 042
     Dates: start: 20180807

REACTIONS (5)
  - Alanine aminotransferase increased [Recovered/Resolved]
  - Aspartate aminotransferase increased [Recovered/Resolved]
  - Thrombocytopenia [Unknown]
  - Sepsis [Recovered/Resolved]
  - Leukopenia [Unknown]

NARRATIVE: CASE EVENT DATE: 2018
